FAERS Safety Report 4445992-X (Version None)
Quarter: 2004Q3

REPORT INFORMATION
  Report Type: 
  Country: None (occurrence: None)
  Receive Date: 20040910
  Receipt Date: 20040903
  Transmission Date: 20050211
  Serious: Yes (Death)
  Sender: FDA-Public Use
  Company Number: US-ROCHE-379783

PATIENT
  Age: 55 Year
  Sex: Female

DRUGS (3)
  1. BUMEX [Suspect]
     Indication: DIURETIC THERAPY
     Route: 065
  2. NATRECOR [Suspect]
     Indication: CARDIAC FAILURE CONGESTIVE
     Dosage: DOSAGE: REGULAR DOSE.
     Route: 042
     Dates: start: 20040715
  3. NATRECOR [Suspect]
     Dosage: DOSE REDUCED.
     Route: 042

REACTIONS (5)
  - BLOOD POTASSIUM DECREASED [None]
  - CARDIAC FAILURE CONGESTIVE [None]
  - HYPOTENSION [None]
  - MULTI-ORGAN FAILURE [None]
  - PULMONARY HYPERTENSION [None]
